FAERS Safety Report 15904529 (Version 1)
Quarter: 2019Q1

REPORT INFORMATION
  Report Type: Spontaneous
  Country: US (occurrence: US)
  Receive Date: 20190110
  Receipt Date: 20190110
  Transmission Date: 20190417
  Serious: Yes (Hospitalization)
  Sender: FDA-Public Use
  Company Number: None

PATIENT
  Age: 73 Year
  Sex: Male

DRUGS (3)
  1. VERAPAMIL 360MG SR CAPSULES [Suspect]
     Active Substance: VERAPAMIL HYDROCHLORIDE
     Dates: start: 20180101, end: 20180105
  2. LISINOPRIL. [Suspect]
     Active Substance: LISINOPRIL
  3. ATORVASTATIN 10MG DAILY [Suspect]
     Active Substance: ATORVASTATIN

REACTIONS (3)
  - Bradycardia [None]
  - Manufacturing product shipping issue [None]
  - Wrong patient received product [None]

NARRATIVE: CASE EVENT DATE: 20181212
